FAERS Safety Report 4494330-5 (Version None)
Quarter: 2004Q4

REPORT INFORMATION
  Report Type: 
  Country: None (occurrence: None)
  Receive Date: 20041102
  Receipt Date: 20041015
  Transmission Date: 20050328
  Serious: Yes (Hospitalization)
  Sender: FDA-Public Use
  Company Number: EWC041041093

PATIENT
  Age: 48 Year
  Sex: Male

DRUGS (1)
  1. ZYPREXA [Suspect]
     Indication: DELUSIONAL DISORDER, PERSECUTORY TYPE
     Dosage: 10 MG DAY
     Dates: start: 20020101, end: 20020101

REACTIONS (1)
  - JAUNDICE ACHOLURIC [None]
